FAERS Safety Report 16380204 (Version 1)
Quarter: 2019Q2

REPORT INFORMATION
  Report Type: Other
  Country: FR (occurrence: FR)
  Receive Date: 20190601
  Receipt Date: 20190601
  Transmission Date: 20190711
  Serious: Yes (Other)
  Sender: FDA-Public Use
  Company Number: FR-APOTEX-2019AP015511

PATIENT
  Sex: Male

DRUGS (2)
  1. DEPAMIDE [Suspect]
     Active Substance: VALPROMIDE
     Indication: DEPRESSION
     Dosage: 300 MG, 2 DF, QD
     Route: 064
     Dates: start: 20161111, end: 201612
  2. PAROXETINE. [Suspect]
     Active Substance: PAROXETINE
     Indication: DEPRESSION
     Dosage: 20 MG, QD
     Route: 064
     Dates: start: 20161111, end: 20170810

REACTIONS (2)
  - Foetal exposure during pregnancy [Unknown]
  - Psychomotor retardation [Not Recovered/Not Resolved]

NARRATIVE: CASE EVENT DATE: 20190408
